FAERS Safety Report 15606286 (Version 2)
Quarter: 2018Q4

REPORT INFORMATION
  Report Type: Spontaneous
  Country: DK (occurrence: DK)
  Receive Date: 20181112
  Receipt Date: 20181205
  Transmission Date: 20190205
  Serious: Yes (Other)
  Sender: FDA-Public Use
  Company Number: DK-AUROBINDO-AUR-APL-2018-054517

PATIENT
  Age: 46 Year
  Sex: Female

DRUGS (3)
  1. RIVOTRIL [Suspect]
     Active Substance: CLONAZEPAM
     Indication: SUICIDE ATTEMPT
     Dosage: UNK
     Route: 048
     Dates: start: 20171226
  2. LAMOTRIGINE AUROBINDO TABLETS 100MG [Suspect]
     Active Substance: LAMOTRIGINE
     Indication: SUICIDE ATTEMPT
     Dosage: 200 MG 1 DGL. VED CASE OF SUICIDE: UNKNOWN
     Route: 048
     Dates: start: 20160101
  3. OXAPAX [Suspect]
     Active Substance: OXAZEPAM
     Indication: RESTLESSNESS
     Dosage: 7.5 MILLIGRAM, AS NECESSARY
     Route: 048
     Dates: start: 20180116, end: 20180307

REACTIONS (3)
  - Drug-induced liver injury [Not Recovered/Not Resolved]
  - Headache [Not Recovered/Not Resolved]
  - Blood urine present [Not Recovered/Not Resolved]
